FAERS Safety Report 6558744-1 (Version None)
Quarter: 2010Q1

REPORT INFORMATION
  Report Type: 
  Country: None (occurrence: None)
  Receive Date: 20100129
  Receipt Date: 20100121
  Transmission Date: 20100710
  Serious: No
  Sender: FDA-Public Use
  Company Number: B0628395A

PATIENT
  Age: 11 Year
  Sex: Male
  Weight: 42 kg

DRUGS (4)
  1. RELENZA [Suspect]
     Indication: INFLUENZA
     Dosage: 20MG PER DAY
     Route: 055
     Dates: start: 20100112
  2. MUCODYNE [Concomitant]
     Route: 048
  3. MEDICON [Concomitant]
     Route: 048
  4. CALONAL [Concomitant]

REACTIONS (1)
  - OVERDOSE [None]
